FAERS Safety Report 10056624 (Version 1)
Quarter: 2014Q2

REPORT INFORMATION
  Report Type: Report from Study
  Country: US (occurrence: US)
  Receive Date: 20140403
  Receipt Date: 20140403
  Transmission Date: 20141212
  Serious: Yes (Death, Other)
  Sender: FDA-Public Use
  Company Number: US-ABBVIE-14P-163-1219494-00

PATIENT
  Sex: Male

DRUGS (1)
  1. HUMIRA [Suspect]
     Indication: RHEUMATOID ARTHRITIS
     Dates: start: 2006

REACTIONS (6)
  - Lung neoplasm malignant [Fatal]
  - Fall [Fatal]
  - Fall [Unknown]
  - Hepatic haemorrhage [Unknown]
  - Bladder cancer [Unknown]
  - Asthenia [Unknown]
